FAERS Safety Report 23671012 (Version 1)
Quarter: 2024Q1

REPORT INFORMATION
  Report Type: Spontaneous
  Country: US (occurrence: US)
  Receive Date: 20240326
  Receipt Date: 20240326
  Transmission Date: 20240410
  Serious: No
  Sender: FDA-Public Use
  Company Number: US-TEVA-VS-3139951

PATIENT
  Age: 40 Year
  Sex: Female
  Weight: 60.78 kg

DRUGS (4)
  1. AJOVY [Suspect]
     Active Substance: FREMANEZUMAB-VFRM
     Indication: Migraine
     Dosage: STRENGTH- 225/1.5 MG/ML
     Route: 065
  2. AJOVY [Suspect]
     Active Substance: FREMANEZUMAB-VFRM
  3. ASPIRIN [Concomitant]
     Active Substance: ASPIRIN
  4. BENADRYL [Concomitant]
     Active Substance: DIPHENHYDRAMINE HYDROCHLORIDE

REACTIONS (7)
  - Rash [Recovered/Resolved]
  - Throat irritation [Not Recovered/Not Resolved]
  - Malaise [Unknown]
  - Erythema [Unknown]
  - Pruritus [Unknown]
  - Rash papular [Not Recovered/Not Resolved]
  - Pyrexia [Recovered/Resolved]
